FAERS Safety Report 6242462-3 (Version None)
Quarter: 2009Q2

REPORT INFORMATION
  Report Type: 
  Country: None (occurrence: None)
  Receive Date: 20090622
  Receipt Date: 20090622
  Transmission Date: 20091009
  Serious: Yes (Other)
  Sender: FDA-Public Use
  Company Number: None

PATIENT
  Sex: Female

DRUGS (1)
  1. BUPROPION HCL [Suspect]
     Indication: DRUG USE FOR UNKNOWN INDICATION
     Dosage: 150 MG/ PER DAY/ ORAL
     Route: 048
     Dates: start: 20090602

REACTIONS (8)
  - HALLUCINATION [None]
  - HEADACHE [None]
  - INSOMNIA [None]
  - NAUSEA [None]
  - PALPITATIONS [None]
  - TINNITUS [None]
  - VISION BLURRED [None]
  - VOMITING [None]
